FAERS Safety Report 16207451 (Version 1)
Quarter: 2019Q2

REPORT INFORMATION
  Report Type: Spontaneous
  Country: US (occurrence: US)
  Receive Date: 20190417
  Receipt Date: 20190417
  Transmission Date: 20190711
  Serious: No
  Sender: FDA-Public Use
  Company Number: US-PFIZER INC-2019155785

PATIENT
  Age: 77 Year
  Sex: Male
  Weight: 85.28 kg

DRUGS (3)
  1. CHANTIX [Suspect]
     Active Substance: VARENICLINE TARTRATE
     Dosage: HALF A MILLIGRAM IN THE MORNING AND EVENING
     Route: 048
  2. CHANTIX [Suspect]
     Active Substance: VARENICLINE TARTRATE
     Indication: SMOKING CESSATION THERAPY
     Dosage: UNK
  3. CHANTIX [Suspect]
     Active Substance: VARENICLINE TARTRATE
     Dosage: 1 MG, 2X/DAY (1 MG, ONCE IN THE MORNING AND ONCE IN THE EVENING)
     Route: 048
     Dates: start: 201811

REACTIONS (7)
  - Drug ineffective [Unknown]
  - Eye discharge [Unknown]
  - Intentional product misuse [Unknown]
  - Taste disorder [Unknown]
  - Malaise [Unknown]
  - Cough [Not Recovered/Not Resolved]
  - Insomnia [Unknown]
